FAERS Safety Report 7442567-5 (Version None)
Quarter: 2011Q2

REPORT INFORMATION
  Report Type: 
  Country: None (occurrence: None)
  Receive Date: 20110426
  Receipt Date: 20110426
  Transmission Date: 20111010
  Serious: No
  Sender: FDA-Public Use
  Company Number: None

PATIENT
  Age: 39 Year
  Sex: Male
  Weight: 102.0593 kg

DRUGS (1)
  1. COLCRYS [Suspect]
     Indication: GOUT
     Dosage: 0.6MG AT LEAST DAILY PO
     Route: 048
     Dates: start: 20101201, end: 20110215

REACTIONS (12)
  - PAIN IN EXTREMITY [None]
  - PALLOR [None]
  - PRODUCT SUBSTITUTION ISSUE [None]
  - HYPERHIDROSIS [None]
  - WEIGHT DECREASED [None]
  - NAUSEA [None]
  - PULSE PRESSURE DECREASED [None]
  - RESTLESS LEGS SYNDROME [None]
  - ABDOMINAL PAIN [None]
  - MENTAL DISORDER [None]
  - PERIPHERAL CIRCULATORY FAILURE [None]
  - NIGHT SWEATS [None]
